FAERS Safety Report 10169538 (Version 6)
Quarter: 2016Q3

REPORT INFORMATION
  Report Type: Report from Study
  Country: JP (occurrence: JP)
  Receive Date: 20140513
  Receipt Date: 20160721
  Transmission Date: 20161108
  Serious: Yes (Death, Hospitalization, Other)
  Sender: FDA-Public Use
  Company Number: JP-GILEAD-2014-0101993

PATIENT
  Age: 42 Year
  Sex: Female
  Weight: 47 kg

DRUGS (22)
  1. AMBRISENTAN [Suspect]
     Active Substance: AMBRISENTAN
     Indication: PULMONARY ARTERIAL HYPERTENSION
     Dosage: 2.5 MG, QD
     Route: 048
     Dates: start: 20110315, end: 20110325
  2. FAMOTIDINE. [Concomitant]
     Active Substance: FAMOTIDINE
     Dosage: UNK
     Route: 048
     Dates: start: 20110409
  3. GLIVEC [Suspect]
     Active Substance: IMATINIB MESYLATE
     Indication: PULMONARY ARTERIAL HYPERTENSION
     Dosage: UNK
     Route: 048
     Dates: start: 20110806
  4. FLOLAN [Concomitant]
     Active Substance: EPOPROSTENOL SODIUM
     Dosage: UNK
     Route: 042
     Dates: start: 20110606
  5. FLOLAN [Concomitant]
     Active Substance: EPOPROSTENOL SODIUM
     Dosage: UNK
     Dates: start: 20120313
  6. ALDACTONE A [Concomitant]
     Active Substance: SPIRONOLACTONE
     Dosage: UNK
     Route: 048
     Dates: end: 20120314
  7. FLUITRAN [Concomitant]
     Active Substance: TRICHLORMETHIAZIDE
     Dosage: UNK
     Route: 048
  8. LUPRAC [Concomitant]
     Active Substance: TORSEMIDE
     Dosage: UNK
     Route: 048
     Dates: end: 20120830
  9. AMBRISENTAN [Suspect]
     Active Substance: AMBRISENTAN
     Indication: PULMONARY ARTERIAL HYPERTENSION
     Dosage: 2.5 MG, BID
     Route: 048
     Dates: start: 20110326, end: 20110402
  10. AMBRISENTAN [Suspect]
     Active Substance: AMBRISENTAN
     Dosage: 2.5 MG, BID
     Route: 048
     Dates: start: 20110824, end: 20120830
  11. FLOLAN [Concomitant]
     Active Substance: EPOPROSTENOL SODIUM
     Indication: PULMONARY ARTERIAL HYPERTENSION
     Dosage: UNK
     Route: 042
     Dates: start: 20110314, end: 20110605
  12. ALDACTONE A [Concomitant]
     Active Substance: SPIRONOLACTONE
     Dosage: UNK
     Route: 048
     Dates: start: 20120315
  13. GASMOTIN [Concomitant]
     Active Substance: MOSAPRIDE CITRATE
     Dosage: UNK
     Route: 048
     Dates: start: 20031018
  14. PIROLACTON [Concomitant]
     Active Substance: SPIRONOLACTONE
     Dosage: UNK
     Dates: start: 20120315
  15. AMBRISENTAN [Suspect]
     Active Substance: AMBRISENTAN
     Dosage: 5 MG, BID
     Route: 048
     Dates: start: 20110414, end: 20110722
  16. REVATIO [Concomitant]
     Active Substance: SILDENAFIL CITRATE
     Indication: PULMONARY ARTERIAL HYPERTENSION
     Dosage: UNK
     Route: 048
     Dates: start: 20080421
  17. ACARDI [Concomitant]
     Dosage: UNK
     Route: 048
     Dates: start: 20031006, end: 20110408
  18. PIMOBENDAN [Concomitant]
     Active Substance: PIMOBENDAN
     Dosage: UNK
     Route: 048
     Dates: start: 20110409
  19. ZANTAC [Concomitant]
     Active Substance: RANITIDINE HYDROCHLORIDE
     Dosage: UNK
     Route: 048
     Dates: start: 20100817, end: 20110408
  20. AMBRISENTAN [Suspect]
     Active Substance: AMBRISENTAN
     Dosage: 5 MG, BID
     Route: 048
     Dates: start: 20110723, end: 20110823
  21. AMBRISENTAN [Suspect]
     Active Substance: AMBRISENTAN
     Dosage: 5 MG, BID
     Route: 048
     Dates: start: 20110403, end: 20110413
  22. FUROSEMIDE. [Concomitant]
     Active Substance: FUROSEMIDE
     Dosage: UNK
     Route: 065
     Dates: start: 20110720

REACTIONS (6)
  - Right ventricular failure [Fatal]
  - Cystitis [Recovered/Resolved]
  - Cardiac failure [Recovering/Resolving]
  - Oedema [Recovering/Resolving]
  - Iron deficiency anaemia [Unknown]
  - Off label use [Recovered/Resolved]

NARRATIVE: CASE EVENT DATE: 20110315
